FAERS Safety Report 14148531 (Version 1)
Quarter: 2017Q4

REPORT INFORMATION
  Report Type: Spontaneous
  Country: US (occurrence: US)
  Receive Date: 20171031
  Receipt Date: 20171031
  Transmission Date: 20180321
  Serious: Yes (Hospitalization)
  Sender: FDA-Public Use
  Company Number: None

PATIENT
  Age: 67 Year
  Sex: Female

DRUGS (11)
  1. XANAX [Concomitant]
     Active Substance: ALPRAZOLAM
  2. RITUXXAN [Concomitant]
  3. GRANISETRON [Suspect]
     Active Substance: GRANISETRON
     Indication: AGRANULOCYTOSIS
     Dosage: ?          OTHER FREQUENCY:INFUSE;?INTRAVENOUS (NOT OTHERWISE SPECIFIED)
     Route: 042
  4. TRAMADOL. [Concomitant]
     Active Substance: TRAMADOL
  5. DOXORUBICIN [Concomitant]
     Active Substance: DOXORUBICIN
  6. DIPHENYDRYAMINE [Concomitant]
  7. PREDNISONE. [Concomitant]
     Active Substance: PREDNISONE
  8. ACRONEL [Concomitant]
  9. DEXAMETHASONE. [Concomitant]
     Active Substance: DEXAMETHASONE
  10. GRANISETRON [Suspect]
     Active Substance: GRANISETRON
     Indication: DIFFUSE LARGE B-CELL LYMPHOMA
     Dosage: ?          OTHER FREQUENCY:INFUSE;?INTRAVENOUS (NOT OTHERWISE SPECIFIED)
     Route: 042
  11. VINCRISTINE [Concomitant]
     Active Substance: VINCRISTINE

REACTIONS (1)
  - Hospitalisation [None]
